FAERS Safety Report 17763212 (Version 4)
Quarter: 2020Q3

REPORT INFORMATION
  Report Type: Spontaneous
  Country: US (occurrence: US)
  Receive Date: 20200508
  Receipt Date: 20200721
  Transmission Date: 20201102
  Serious: Yes (Death, Hospitalization, Other)
  Sender: FDA-Public Use
  Company Number: US-NAPPMUNDI-USA-2020-0152517

PATIENT
  Age: 35 Year
  Sex: Female

DRUGS (1)
  1. OXYCONTIN [Suspect]
     Active Substance: OXYCODONE HYDROCHLORIDE
     Indication: BACK PAIN
     Dosage: UNK
     Route: 048
     Dates: end: 20070209

REACTIONS (8)
  - Depression [Unknown]
  - Suicidal ideation [Unknown]
  - Drug abuse [Unknown]
  - Drug dependence [Unknown]
  - Road traffic accident [Unknown]
  - Gait disturbance [Unknown]
  - Overdose [Fatal]
  - Memory impairment [Unknown]

NARRATIVE: CASE EVENT DATE: 20070209
